FAERS Safety Report 7709770-8 (Version None)
Quarter: 2011Q3

REPORT INFORMATION
  Report Type: 
  Country: None (occurrence: None)
  Receive Date: 20110825
  Receipt Date: 20110817
  Transmission Date: 20111222
  Serious: Yes (Hospitalization, Other)
  Sender: FDA-Public Use
  Company Number: FR-BAYER-2011-055149

PATIENT
  Age: 56 Year
  Sex: Male

DRUGS (5)
  1. NEXAVAR [Suspect]
     Indication: HEPATIC NEOPLASM MALIGNANT
     Dosage: UNK
     Dates: start: 20110601
  2. PROPRANOLOL [Suspect]
     Indication: HYPERTENSION
  3. NEXAVAR [Suspect]
     Dosage: UNK
  4. PRAVASTATIN [Concomitant]
     Indication: HEPATIC NEOPLASM MALIGNANT
     Dosage: 2 X 200MG
     Dates: start: 20110601
  5. PRAVASTATIN [Concomitant]
     Dosage: UNK

REACTIONS (5)
  - DIARRHOEA [None]
  - COLITIS ULCERATIVE [None]
  - DIARRHOEA HAEMORRHAGIC [None]
  - ENTEROCOLITIS INFECTIOUS [None]
  - PYREXIA [None]
